FAERS Safety Report 23631194 (Version 1)
Quarter: 2024Q1

REPORT INFORMATION
  Report Type: Spontaneous
  Country: CN (occurrence: CN)
  Receive Date: 20240314
  Receipt Date: 20240314
  Transmission Date: 20240410
  Serious: Yes (Other)
  Sender: FDA-Public Use
  Company Number: CN-SUN PHARMACEUTICAL INDUSTRIES LTD-2024R1-434697

PATIENT
  Sex: Male
  Weight: 54 kg

DRUGS (3)
  1. PALIPERIDONE [Suspect]
     Active Substance: PALIPERIDONE
     Indication: Bipolar disorder
     Dosage: 3 MILLIGRAM, QD
     Route: 048
     Dates: start: 20240127, end: 20240220
  2. PALIPERIDONE [Suspect]
     Active Substance: PALIPERIDONE
     Dosage: 9 MILLIGRAM/DAY
     Route: 048
     Dates: start: 20240221
  3. PALIPERIDONE [Suspect]
     Active Substance: PALIPERIDONE
     Dosage: 6 MILLIGRAM/DAY
     Route: 048
     Dates: start: 20240228

REACTIONS (1)
  - Hypertension [Recovered/Resolved]
